FAERS Safety Report 5294296-4 (Version None)
Quarter: 2007Q2

REPORT INFORMATION
  Report Type: 
  Country: None (occurrence: None)
  Receive Date: 20070412
  Receipt Date: 20070328
  Transmission Date: 20071010
  Serious: Yes (Other)
  Sender: FDA-Public Use
  Company Number: US-JNJFOC-20070300950

PATIENT
  Age: 63 Year
  Sex: Female

DRUGS (3)
  1. REMICADE [Suspect]
     Indication: CROHN'S DISEASE
     Route: 042
  2. METHOTREXATE [Concomitant]
     Indication: CROHN'S DISEASE
  3. PERCOCET [Concomitant]
     Indication: PAIN

REACTIONS (12)
  - ABASIA [None]
  - ARTHRALGIA [None]
  - BODY TEMPERATURE INCREASED [None]
  - CHILLS [None]
  - FATIGUE [None]
  - HEADACHE [None]
  - JOINT SWELLING [None]
  - LOWER LIMB FRACTURE [None]
  - MUSCULOSKELETAL PAIN [None]
  - NASOPHARYNGITIS [None]
  - PAIN [None]
  - ROAD TRAFFIC ACCIDENT [None]
